FAERS Safety Report 6144680-1 (Version None)
Quarter: 2009Q2

REPORT INFORMATION
  Report Type: 
  Country: None (occurrence: None)
  Receive Date: 20090406
  Receipt Date: 20090402
  Transmission Date: 20091009
  Serious: Yes (Other)
  Sender: FDA-Public Use
  Company Number: B0563978A

PATIENT
  Sex: Female

DRUGS (4)
  1. RELENZA [Suspect]
     Indication: INFLUENZA
     Dosage: 10MG TWICE PER DAY
     Route: 055
     Dates: start: 20090224
  2. FLOMOX [Concomitant]
     Indication: PHARYNGEAL ERYTHEMA
     Dosage: 210MG PER DAY
     Route: 048
     Dates: start: 20090224
  3. ENTERONON-R [Concomitant]
     Dosage: .9G PER DAY
     Route: 048
     Dates: start: 20090224
  4. CALONAL [Concomitant]
     Route: 048
     Dates: start: 20090224

REACTIONS (1)
  - DELIRIUM [None]
